FAERS Safety Report 13706431 (Version 3)
Quarter: 2017Q3

REPORT INFORMATION
  Report Type: Spontaneous
  Country: US (occurrence: US)
  Receive Date: 20170630
  Receipt Date: 20170921
  Transmission Date: 20171127
  Serious: Yes (Death, Life-Threatening, Hospitalization, Other)
  Sender: FDA-Public Use
  Company Number: US-JNJFOC-20170626817

PATIENT
  Sex: Female

DRUGS (3)
  1. XARELTO [Suspect]
     Active Substance: RIVAROXABAN
     Indication: CEREBROVASCULAR ACCIDENT PROPHYLAXIS
     Dosage: 15, 20 MG
     Route: 048
     Dates: start: 20150626, end: 20150707
  2. RYTHMOL [Suspect]
     Active Substance: PROPAFENONE HYDROCHLORIDE
     Indication: ATRIAL FIBRILLATION
     Route: 048
     Dates: start: 201506, end: 201507
  3. XARELTO [Suspect]
     Active Substance: RIVAROXABAN
     Indication: ATRIAL FIBRILLATION
     Dosage: 15, 20 MG
     Route: 048
     Dates: start: 20150626, end: 20150707

REACTIONS (6)
  - Pleural effusion [Recovering/Resolving]
  - Respiratory failure [Fatal]
  - Internal haemorrhage [Unknown]
  - Pericardial effusion [Recovering/Resolving]
  - Cardiac failure congestive [Unknown]
  - Haemorrhagic anaemia [Recovering/Resolving]

NARRATIVE: CASE EVENT DATE: 2015
